FAERS Safety Report 8351281-3 (Version None)
Quarter: 2012Q2

REPORT INFORMATION
  Report Type: 
  Country: None (occurrence: None)
  Receive Date: 20120510
  Receipt Date: 20110526
  Transmission Date: 20120825
  Serious: No
  Sender: FDA-Public Use
  Company Number: US-TEVA-2011002637

PATIENT
  Sex: Female

DRUGS (5)
  1. PLAVIX [Concomitant]
     Dates: start: 20070101
  2. NUVIGIL [Suspect]
     Indication: SOMNOLENCE
     Dosage: 250 MILLIGRAM;
     Route: 048
     Dates: start: 20110525, end: 20110525
  3. METOPROLOL TARTRATE [Concomitant]
     Dates: start: 20070101
  4. AMLODIPINE BESYLATE [Concomitant]
     Dates: start: 20070101
  5. ANTIBIOTICS [Concomitant]

REACTIONS (1)
  - INSOMNIA [None]
